FAERS Safety Report 7989022-1 (Version None)
Quarter: 2011Q4

REPORT INFORMATION
  Report Type: 
  Country: None (occurrence: None)
  Receive Date: 20111219
  Receipt Date: 20111207
  Transmission Date: 20120403
  Serious: Yes (Hospitalization)
  Sender: FDA-Public Use
  Company Number: PHHY2011US46339

PATIENT
  Sex: Male

DRUGS (5)
  1. REVLIMID [Suspect]
  2. EXJADE [Suspect]
     Indication: IRON OVERLOAD
     Dosage: 1500 MG, DAILY
     Route: 048
     Dates: start: 20081111
  3. EXJADE [Suspect]
     Dosage: 1500 MG, DAILY
     Route: 048
     Dates: start: 20090911
  4. DIOVAN [Concomitant]
  5. FUROSEMIDE [Concomitant]

REACTIONS (11)
  - ASTHENIA [None]
  - ATRIAL FIBRILLATION [None]
  - DIZZINESS [None]
  - DECREASED APPETITE [None]
  - DYSPNOEA [None]
  - PRURITUS [None]
  - FULL BLOOD COUNT DECREASED [None]
  - VOMITING [None]
  - PYREXIA [None]
  - MYOCARDIAL INFARCTION [None]
  - DIARRHOEA [None]
